FAERS Safety Report 7736824-2 (Version None)
Quarter: 2011Q3

REPORT INFORMATION
  Report Type: 
  Country: None (occurrence: None)
  Receive Date: 20110908
  Receipt Date: 20110908
  Transmission Date: 20111222
  Serious: Yes (Life-Threatening, Other)
  Sender: FDA-Public Use
  Company Number: None

PATIENT
  Age: 15 Year
  Sex: Male
  Weight: 58.967 kg

DRUGS (2)
  1. ASPIRIN [Suspect]
     Indication: HEADACHE
     Dosage: 3 TO FOUR PILLS A DAY
  2. ASPIRIN [Suspect]
     Indication: NASOPHARYNGITIS
     Dosage: 3 TO FOUR PILLS A DAY

REACTIONS (3)
  - PREMATURE DELIVERY [None]
  - MATERNAL EXPOSURE DURING PREGNANCY [None]
  - ANTEPARTUM HAEMORRHAGE [None]
